FAERS Safety Report 5684145-4 (Version None)
Quarter: 2008Q1

REPORT INFORMATION
  Report Type: 
  Country: None (occurrence: None)
  Receive Date: 20080328
  Receipt Date: 20070509
  Transmission Date: 20080703
  Serious: No
  Sender: FDA-Public Use
  Company Number: US-AMGEN-KDL223857

PATIENT
  Sex: Male

DRUGS (3)
  1. NEULASTA [Suspect]
     Indication: CHEMOTHERAPY
     Route: 058
     Dates: start: 20070501
  2. GEMZAR [Concomitant]
  3. CARBOPLATIN [Concomitant]

REACTIONS (4)
  - BONE PAIN [None]
  - DYSURIA [None]
  - SLEEP DISORDER [None]
  - URINE OUTPUT DECREASED [None]
